FAERS Safety Report 8327442-6 (Version None)
Quarter: 2012Q2

REPORT INFORMATION
  Report Type: 
  Country: None (occurrence: None)
  Receive Date: 20120426
  Receipt Date: 20120419
  Transmission Date: 20120825
  Serious: Yes (Hospitalization)
  Sender: FDA-Public Use
  Company Number: 2011027811

PATIENT
  Age: 84 Year
  Sex: Female
  Weight: 68.0396 kg

DRUGS (26)
  1. HIZENTRA [Suspect]
     Indication: IMMUNODEFICIENCY COMMON VARIABLE
     Dosage: 8 G 1X/WEEK, IN 4 SITES OVER 2 HOURS SUBCUTANEOUS
     Route: 058
  2. ALVESCO [Concomitant]
  3. GLIPIZIDE XL (GLIPIZIDE) [Concomitant]
  4. XOPENEX [Concomitant]
  5. ASPIRIN [Concomitant]
  6. HIZENTRA [Suspect]
     Indication: IMMUNODEFICIENCY COMMON VARIABLE
  7. MIRAPEX [Concomitant]
  8. AFRIN [Concomitant]
  9. CITRACAL D (CITRACAL + D) [Concomitant]
  10. FLUOROURACIL [Concomitant]
  11. GABAPENTIN [Concomitant]
  12. FLUTICASONE FUROATE [Concomitant]
  13. DIPHENHYDRAMINE HCL [Concomitant]
  14. LMX (LIDOCAINE HYDROCHLORIDE) [Concomitant]
  15. HIZENTRA [Suspect]
     Indication: IMMUNODEFICIENCY COMMON VARIABLE
     Dosage: 7 G 1X/WEEK, INFUSED 35 ML WEEKLY VIA 4 SITES SUBCUTANEOUS
     Dates: start: 20101025
  16. HIZENTRA [Suspect]
     Indication: IMMUNODEFICIENCY COMMON VARIABLE
  17. HIZENTRA [Suspect]
     Indication: IMMUNODEFICIENCY COMMON VARIABLE
  18. ALBUTEROL [Concomitant]
  19. VICODIN [Concomitant]
  20. PROAIR (SALBUTAMOL SULFATE) [Concomitant]
  21. POTASSIUM CHLORIDE ER (POTASSIUM CHLORIDE) [Concomitant]
  22. TIZANIDINE HCL [Concomitant]
  23. BROVANA (OTHER RESPIRATORY SYSTEM PRODUCTS) [Concomitant]
  24. FENOFIBRATE [Concomitant]
  25. TRIAMTERENE [Concomitant]
  26. BUDESONIDE [Concomitant]

REACTIONS (4)
  - DYSPNOEA [None]
  - FATIGUE [None]
  - PNEUMONIA [None]
  - DRUG INEFFECTIVE [None]
